FAERS Safety Report 6471395-2 (Version None)
Quarter: 2009Q4

REPORT INFORMATION
  Report Type: 
  Country: None (occurrence: None)
  Receive Date: 20091203
  Receipt Date: 20080202
  Transmission Date: 20100525
  Serious: Yes (Hospitalization)
  Sender: FDA-Public Use
  Company Number: TR-ELI_LILLY_AND_COMPANY-TR200802003382

PATIENT
  Sex: Female
  Weight: 80 kg

DRUGS (5)
  1. HUMULIN R [Suspect]
     Indication: TYPE 2 DIABETES MELLITUS
     Dosage: 10 U, EACH MORNING
     Route: 058
     Dates: start: 20080101
  2. HUMULIN R [Suspect]
     Dosage: 10 U, NOON
     Route: 058
     Dates: start: 20080101
  3. HUMULIN R [Suspect]
     Dosage: 10 U, EACH EVENING
     Route: 058
     Dates: start: 20080101
  4. HUMULIN N [Suspect]
     Indication: TYPE 2 DIABETES MELLITUS
     Dosage: 10 U, AT NIGHT
     Route: 058
     Dates: start: 20080101
  5. KETOSTERIL [Concomitant]
     Dosage: UNK, 3/D AFTER MEALS
     Route: 048

REACTIONS (1)
  - GANGRENE [None]
